FAERS Safety Report 6371318-0 (Version None)
Quarter: 2009Q3

REPORT INFORMATION
  Report Type: 
  Country: None (occurrence: None)
  Receive Date: 20090918
  Receipt Date: 20090907
  Transmission Date: 20100115
  Serious: Yes (Other)
  Sender: FDA-Public Use
  Company Number: 2009SP024528

PATIENT
  Age: 36 Year
  Sex: Female
  Weight: 56 kg

DRUGS (2)
  1. NUVARING [Suspect]
     Indication: CONTRACEPTION
     Dosage: ; VAG
     Route: 067
     Dates: start: 20090818, end: 20090906
  2. EUTHROID-1 [Concomitant]

REACTIONS (2)
  - TACHYCARDIA [None]
  - VAGINAL HAEMORRHAGE [None]
